FAERS Safety Report 20833078 (Version 1)
Quarter: 2022Q2

REPORT INFORMATION
  Report Type: Spontaneous
  Country: US (occurrence: None)
  Receive Date: 20220514
  Receipt Date: 20220514
  Transmission Date: 20220721
  Serious: Yes (Hospitalization)
  Sender: FDA-Public Use
  Company Number: None

PATIENT
  Sex: Male
  Weight: 15.1 kg

DRUGS (2)
  1. METHOTREXATE [Suspect]
     Active Substance: METHOTREXATE
  2. ONCASPAR [Concomitant]
     Active Substance: PEGASPARGASE

REACTIONS (4)
  - Seizure [None]
  - Tremor [None]
  - Unresponsive to stimuli [None]
  - Neurotoxicity [None]

NARRATIVE: CASE EVENT DATE: 20220512
